FAERS Safety Report 4676530-4 (Version None)
Quarter: 2005Q2

REPORT INFORMATION
  Report Type: 
  Country: None (occurrence: None)
  Receive Date: 20050527
  Receipt Date: 20050526
  Transmission Date: 20051028
  Serious: Yes (Death)
  Sender: FDA-Public Use
  Company Number: PHRM2005FR01638

PATIENT
  Age: 2 Day

DRUGS (1)
  1. SYNTOCINON [Suspect]
     Dosage: UNK, UNK
     Route: 064
     Dates: start: 20040820, end: 20040820

REACTIONS (1)
  - DEATH NEONATAL [None]
